FAERS Safety Report 6373736-3 (Version None)
Quarter: 2009Q3

REPORT INFORMATION
  Report Type: 
  Country: None (occurrence: None)
  Receive Date: 20090924
  Receipt Date: 20090427
  Transmission Date: 20100115
  Serious: Yes (Other)
  Sender: FDA-Public Use
  Company Number: US-ASTRAZENECA-2009UW10423

PATIENT
  Sex: Male
  Weight: 79.8 kg

DRUGS (3)
  1. SEROQUEL XR [Suspect]
     Dosage: SEROQUEL - 150 MG AND 300 MG IN THE EVENING
     Route: 048
  2. SEROQUEL XR [Suspect]
     Route: 048
  3. LORAZEPAM [Concomitant]

REACTIONS (3)
  - PALPITATIONS [None]
  - SOMNOLENCE [None]
  - WEIGHT INCREASED [None]
